FAERS Safety Report 8575478-2 (Version None)
Quarter: 2012Q3

REPORT INFORMATION
  Report Type: 
  Country: None (occurrence: None)
  Receive Date: 20120807
  Receipt Date: 20120802
  Transmission Date: 20120928
  Serious: Yes (Hospitalization, Other)
  Sender: FDA-Public Use
  Company Number: PHEH2010US00476

PATIENT
  Sex: Female
  Weight: 77.098 kg

DRUGS (19)
  1. MYLANTA [Concomitant]
  2. PROTONIX [Concomitant]
  3. DECADRON PHOSPHATE [Concomitant]
     Dosage: 10 MG,
     Route: 042
  4. TAMOXIFEN CITRATE [Concomitant]
     Dosage: 20 MG, QD
     Route: 048
  5. CELEBREX [Concomitant]
  6. COLACE [Concomitant]
  7. RESTORIL [Concomitant]
  8. ALBUTEROL [Concomitant]
  9. TAMOXIFEN CITRATE [Concomitant]
  10. CELEXA [Concomitant]
  11. ZOMETA [Suspect]
     Indication: BREAST CANCER METASTATIC
     Dosage: 4 MG, QMO
     Route: 042
     Dates: start: 20030401, end: 20070101
  12. VITAMIN B-12 [Concomitant]
  13. ZOMETA [Suspect]
     Indication: METASTASES TO BONE
  14. LUPRON [Concomitant]
  15. VICODIN [Concomitant]
  16. ATIVAN [Concomitant]
  17. ATROVENT [Concomitant]
  18. PREDNISONE [Concomitant]
  19. SOLU-MEDROL [Concomitant]

REACTIONS (47)
  - PAIN [None]
  - LEUKOCYTOSIS [None]
  - EXPOSED BONE IN JAW [None]
  - OSTEOMYELITIS [None]
  - SENSITIVITY OF TEETH [None]
  - DIARRHOEA [None]
  - SPINAL COMPRESSION FRACTURE [None]
  - CELLULITIS [None]
  - HEPATIC LESION [None]
  - OSTEORADIONECROSIS [None]
  - ANXIETY [None]
  - SPINAL COLUMN STENOSIS [None]
  - LACERATION [None]
  - LETHARGY [None]
  - HOT FLUSH [None]
  - PYREXIA [None]
  - GINGIVAL BLEEDING [None]
  - BRUXISM [None]
  - VOMITING [None]
  - DEHYDRATION [None]
  - ELECTROLYTE IMBALANCE [None]
  - HEADACHE [None]
  - SEXUAL DYSFUNCTION [None]
  - PERIODONTAL DISEASE [None]
  - LYMPHADENOPATHY [None]
  - ADNEXA UTERI CYST [None]
  - FACET JOINT SYNDROME [None]
  - BALANCE DISORDER [None]
  - WEIGHT DECREASED [None]
  - HYPOAESTHESIA [None]
  - RADICULOPATHY [None]
  - CARDIOVASCULAR DISORDER [None]
  - CONTUSION [None]
  - POLYCYTHAEMIA [None]
  - VENA CAVA THROMBOSIS [None]
  - GASTROENTERITIS VIRAL [None]
  - CHRONIC OBSTRUCTIVE PULMONARY DISEASE [None]
  - SPINAL OSTEOARTHRITIS [None]
  - LOOSE TOOTH [None]
  - MULTIPLE INJURIES [None]
  - ANHEDONIA [None]
  - NEUROMYOPATHY [None]
  - HYPOKALAEMIA [None]
  - HIATUS HERNIA [None]
  - DENTAL CARIES [None]
  - OSTEOARTHRITIS [None]
  - TOOTH EXTRACTION [None]
